FAERS Safety Report 7385303-3 (Version None)
Quarter: 2011Q1

REPORT INFORMATION
  Report Type: 
  Country: None (occurrence: None)
  Receive Date: 20110330
  Receipt Date: 20100526
  Transmission Date: 20110831
  Serious: No
  Sender: FDA-Public Use
  Company Number: US-MYLANLABS-2010S1009362

PATIENT
  Age: 41 Year
  Sex: Female

DRUGS (2)
  1. LAMICTAL [Concomitant]
     Indication: ANXIETY
     Route: 048
  2. EMSAM [Suspect]
     Indication: DEPRESSION
     Route: 062

REACTIONS (2)
  - APPLICATION SITE PRURITUS [None]
  - APPLICATION SITE RASH [None]
